FAERS Safety Report 8021605-5 (Version None)
Quarter: 2012Q1

REPORT INFORMATION
  Report Type: 
  Country: None (occurrence: None)
  Receive Date: 20120104
  Receipt Date: 20120104
  Transmission Date: 20120608
  Serious: Yes (Life-Threatening, Hospitalization)
  Sender: FDA-Public Use
  Company Number: None

PATIENT
  Sex: Female
  Weight: 122.46 kg

DRUGS (1)
  1. METFORMIN HCL [Suspect]
     Indication: POLYCYSTIC OVARIES
     Dosage: 500MG TABLETS, TAKING 750MG
     Route: 048
     Dates: start: 20110715, end: 20111211

REACTIONS (6)
  - FATIGUE [None]
  - OEDEMA PERIPHERAL [None]
  - COGNITIVE DISORDER [None]
  - PAIN IN EXTREMITY [None]
  - URTICARIA [None]
  - MOOD SWINGS [None]
